FAERS Safety Report 14071042 (Version 2)
Quarter: 2017Q4

REPORT INFORMATION
  Report Type: Spontaneous
  Country: US (occurrence: US)
  Receive Date: 20171010
  Receipt Date: 20171116
  Transmission Date: 20180321
  Serious: Yes (Other)
  Sender: FDA-Public Use
  Company Number: US-JNJFOC-20170921962

PATIENT
  Age: 88 Year
  Sex: Female
  Weight: 54 kg

DRUGS (17)
  1. IMBRUVICA [Suspect]
     Active Substance: IBRUTINIB
     Indication: CHRONIC LYMPHOCYTIC LEUKAEMIA
     Route: 048
     Dates: start: 20170905, end: 201709
  2. TYLENOL [Concomitant]
     Active Substance: ACETAMINOPHEN
  3. IMBRUVICA [Suspect]
     Active Substance: IBRUTINIB
     Indication: CHRONIC LYMPHOCYTIC LEUKAEMIA
     Route: 048
     Dates: start: 201709, end: 201710
  4. IMBRUVICA [Suspect]
     Active Substance: IBRUTINIB
     Indication: SELECTIVE IGG SUBCLASS DEFICIENCY
     Route: 048
     Dates: start: 201709, end: 201710
  5. CLARITIN [Concomitant]
     Active Substance: LORATADINE
  6. IMBRUVICA [Suspect]
     Active Substance: IBRUTINIB
     Indication: SELECTIVE IGG SUBCLASS DEFICIENCY
     Route: 048
     Dates: start: 20160406, end: 20170725
  7. MULTIVITAMINS [Concomitant]
     Active Substance: VITAMINS
  8. COMBIGAN [Concomitant]
     Active Substance: BRIMONIDINE TARTRATE\TIMOLOL MALEATE
  9. IMBRUVICA [Suspect]
     Active Substance: IBRUTINIB
     Indication: CHRONIC LYMPHOCYTIC LEUKAEMIA
     Route: 048
     Dates: start: 20160406, end: 20170725
  10. IMBRUVICA [Suspect]
     Active Substance: IBRUTINIB
     Indication: SELECTIVE IGG SUBCLASS DEFICIENCY
     Route: 048
     Dates: start: 20170417, end: 201709
  11. GABAPENTIN. [Concomitant]
     Active Substance: GABAPENTIN
  12. CULTURELLE [Concomitant]
     Active Substance: LACTOBACILLUS RHAMNOSUS
  13. LUMIGAN [Concomitant]
     Active Substance: BIMATOPROST
  14. IMBRUVICA [Suspect]
     Active Substance: IBRUTINIB
     Indication: CHRONIC LYMPHOCYTIC LEUKAEMIA
     Route: 048
     Dates: start: 20170417, end: 201709
  15. IMBRUVICA [Suspect]
     Active Substance: IBRUTINIB
     Indication: SELECTIVE IGG SUBCLASS DEFICIENCY
     Route: 048
     Dates: start: 20170905, end: 201709
  16. BIOTIN [Concomitant]
     Active Substance: BIOTIN
  17. PREDNISONE. [Concomitant]
     Active Substance: PREDNISONE

REACTIONS (13)
  - Hypogammaglobulinaemia [Unknown]
  - Platelet function test abnormal [Unknown]
  - Rash generalised [Recovering/Resolving]
  - Hypertension [Recovered/Resolved]
  - Urinary tract infection [Unknown]
  - Off label use [Unknown]
  - Contusion [Recovered/Resolved]
  - Lymphadenopathy [Unknown]
  - Morganella infection [Unknown]
  - Joint swelling [Unknown]
  - Bacterial sepsis [Unknown]
  - Product use in unapproved indication [Unknown]
  - Gastrointestinal disorder [Recovered/Resolved]

NARRATIVE: CASE EVENT DATE: 2017
